FAERS Safety Report 18543887 (Version 1)
Quarter: 2020Q4

REPORT INFORMATION
  Report Type: Spontaneous
  Country: US (occurrence: US)
  Receive Date: 20201125
  Receipt Date: 20201125
  Transmission Date: 20210114
  Serious: Yes (Death, Hospitalization, Other)
  Sender: FDA-Public Use
  Company Number: US-AMGEN-USASP2020189152

PATIENT

DRUGS (7)
  1. DACARBAZINE. [Concomitant]
     Active Substance: DACARBAZINE
     Indication: METASTATIC MALIGNANT MELANOMA
     Dosage: UNK
  2. TAMOXIFEN [Concomitant]
     Active Substance: TAMOXIFEN
     Indication: METASTATIC MALIGNANT MELANOMA
     Dosage: UNK
  3. VINBLASTINE [Concomitant]
     Active Substance: VINBLASTINE
     Indication: METASTATIC MALIGNANT MELANOMA
     Dosage: UNK
  4. INTERFERON ALFA-2B [Concomitant]
     Active Substance: INTERFERON ALFA-2B
     Indication: METASTATIC MALIGNANT MELANOMA
     Dosage: UNK
  5. CISPLATIN. [Concomitant]
     Active Substance: CISPLATIN
     Indication: METASTATIC MALIGNANT MELANOMA
     Dosage: UNK
  6. INTERLEUKIN-2 [Concomitant]
     Active Substance: ALDESLEUKIN
     Indication: METASTATIC MALIGNANT MELANOMA
     Dosage: UNK
  7. FILGRASTIM [Suspect]
     Active Substance: FILGRASTIM
     Indication: PROPHYLAXIS
     Dosage: 5 MICROGRAM/KILOGRAM, EACH DAY FOR 7 TO 10 DAYS
     Route: 058

REACTIONS (36)
  - Metastatic malignant melanoma [Fatal]
  - Influenza like illness [Unknown]
  - Enzyme level increased [Unknown]
  - Decreased appetite [Unknown]
  - Neutropenia [Unknown]
  - Skin exfoliation [Unknown]
  - Infection [Unknown]
  - Therapeutic product effect incomplete [Unknown]
  - Gastrointestinal toxicity [Unknown]
  - Hypokalaemia [Unknown]
  - Pruritus [Unknown]
  - Hypotension [Unknown]
  - Diarrhoea [Unknown]
  - Cerebrovascular accident [Fatal]
  - Deep vein thrombosis [Unknown]
  - Blood bilirubin increased [Unknown]
  - Erythema [Unknown]
  - Anaemia [Unknown]
  - Febrile neutropenia [Unknown]
  - Thrombocytopenia [Unknown]
  - Hypomagnesaemia [Unknown]
  - Pulmonary mass [Unknown]
  - Blood alkaline phosphatase increased [Unknown]
  - Haemorrhage intracranial [Fatal]
  - Staphylococcal infection [Unknown]
  - Nephropathy toxic [Unknown]
  - Unevaluable event [Unknown]
  - Dry skin [Unknown]
  - Nausea [Unknown]
  - Device related infection [Unknown]
  - Weight increased [Unknown]
  - Vomiting [Unknown]
  - Aspartate aminotransferase increased [Unknown]
  - Clostridium difficile colitis [Recovered/Resolved]
  - Weight decreased [Unknown]
  - Rash maculo-papular [Unknown]
